FAERS Safety Report 26160439 (Version 1)
Quarter: 2025Q4

REPORT INFORMATION
  Report Type: Spontaneous
  Country: US (occurrence: US)
  Receive Date: 20251216
  Receipt Date: 20251216
  Transmission Date: 20260117
  Serious: No
  Sender: CSL BEHRING
  Company Number: US-BEH-2025228743

PATIENT
  Age: 63 Year
  Sex: Female

DRUGS (2)
  1. HIZENTRA [Suspect]
     Active Substance: HUMAN IMMUNOGLOBULIN G
     Indication: Immunodeficiency common variable
     Dosage: 3 G, QW
     Route: 058
     Dates: start: 202205
  2. HIZENTRA [Suspect]
     Active Substance: HUMAN IMMUNOGLOBULIN G
     Dosage: 4 G, QW
     Route: 058
     Dates: start: 202205

REACTIONS (4)
  - Bronchitis [Unknown]
  - Illness [Recovered/Resolved]
  - Nasopharyngitis [Unknown]
  - Treatment delayed [Unknown]

NARRATIVE: CASE EVENT DATE: 20251101
